FAERS Safety Report 7145343-6 (Version None)
Quarter: 2010Q4

REPORT INFORMATION
  Report Type: 
  Country: None (occurrence: None)
  Receive Date: 20101208
  Receipt Date: 20101129
  Transmission Date: 20110411
  Serious: Yes (Other)
  Sender: FDA-Public Use
  Company Number: GB-NOVOPROD-307423

PATIENT
  Sex: Male
  Weight: 105.6 kg

DRUGS (5)
  1. VICTOZA [Suspect]
     Indication: TYPE 2 DIABETES MELLITUS
     Dosage: 0.6 MG, UNK
     Route: 058
     Dates: start: 20100324, end: 20100330
  2. VICTOZA [Suspect]
     Dosage: 1.2 MG, QD
     Route: 058
     Dates: start: 20100331, end: 20100418
  3. VICTOZA [Suspect]
     Dosage: 0.6 MG
     Dates: start: 20100423
  4. VICTOZA [Suspect]
     Dosage: 1.2 MG, QD
     Dates: end: 20100506
  5. METFORMIN HCL [Suspect]
     Indication: TYPE 2 DIABETES MELLITUS
     Dosage: 500 MG, BID

REACTIONS (7)
  - ABDOMINAL DISCOMFORT [None]
  - ABDOMINAL PAIN [None]
  - BREATH ODOUR [None]
  - DIARRHOEA [None]
  - FLATULENCE [None]
  - NAUSEA [None]
  - VOMITING [None]
